FAERS Safety Report 10262462 (Version 1)
Quarter: 2014Q2

REPORT INFORMATION
  Report Type: Report from Study
  Country: CN (occurrence: CN)
  Receive Date: 20140626
  Receipt Date: 20140626
  Transmission Date: 20141212
  Serious: Yes (Hospitalization)
  Sender: FDA-Public Use
  Company Number: CN-BRISTOL-MYERS SQUIBB COMPANY-21078845

PATIENT
  Age: 59 Year
  Sex: Male

DRUGS (1)
  1. GLUCOPHAGE TABS 500 MG [Suspect]
     Indication: TYPE 2 DIABETES MELLITUS
     Dosage: INTER-08JUL13
     Route: 048
     Dates: start: 20130516

REACTIONS (1)
  - Cholecystitis acute [Not Recovered/Not Resolved]
